FAERS Safety Report 4957463-2 (Version None)
Quarter: 2006Q1

REPORT INFORMATION
  Report Type: 
  Country: None (occurrence: None)
  Receive Date: 20060328
  Receipt Date: 20060328
  Transmission Date: 20060701
  Serious: Yes (Life-Threatening, Hospitalization, Other)
  Sender: FDA-Public Use
  Company Number: None

PATIENT
  Age: 18 Year
  Sex: Male

DRUGS (1)
  1. TINACTIN [Suspect]
     Indication: EUPHORIC MOOD
     Dosage: UNKNOWN INHALATION
     Route: 055

REACTIONS (7)
  - ANTEROGRADE AMNESIA [None]
  - DRUG ABUSER [None]
  - ELECTROCARDIOGRAM ABNORMAL [None]
  - ELECTROCARDIOGRAM QT PROLONGED [None]
  - INCORRECT ROUTE OF DRUG ADMINISTRATION [None]
  - INTENTIONAL DRUG MISUSE [None]
  - VENTRICULAR FIBRILLATION [None]
